FAERS Safety Report 5156182-X (Version None)
Quarter: 2006Q4

REPORT INFORMATION
  Report Type: 
  Country: None (occurrence: None)
  Receive Date: 20061122
  Receipt Date: 20061114
  Transmission Date: 20070319
  Serious: Yes (Hospitalization)
  Sender: FDA-Public Use
  Company Number: DE-JNJFOC-20061103257

PATIENT
  Age: 55 Year
  Sex: Male

DRUGS (10)
  1. INFLIXIMAB [Suspect]
     Route: 042
  2. INFLIXIMAB [Suspect]
     Route: 042
  3. INFLIXIMAB [Suspect]
     Indication: RHEUMATOID ARTHRITIS
     Route: 042
  4. METHOTREXATE [Concomitant]
     Indication: RHEUMATOID ARTHRITIS
     Route: 048
  5. FOLIC ACID [Concomitant]
     Indication: RHEUMATOID ARTHRITIS
     Route: 048
  6. DICLOFENAC SODIUM [Concomitant]
     Route: 048
  7. DICLOFENAC SODIUM [Concomitant]
     Indication: RHEUMATOID ARTHRITIS
     Route: 048
  8. DECORTIN [Concomitant]
     Route: 048
  9. DECORTIN [Concomitant]
     Indication: RHEUMATOID ARTHRITIS
     Route: 048
  10. OSSOFORTIN FORTE [Concomitant]
     Indication: RHEUMATOID ARTHRITIS
     Route: 048

REACTIONS (3)
  - ACUTE PRERENAL FAILURE [None]
  - GASTROENTERITIS SALMONELLA [None]
  - HEPATIC STEATOSIS [None]
